FAERS Safety Report 22271197 (Version 2)
Quarter: 2023Q2

REPORT INFORMATION
  Report Type: Spontaneous
  Country: US (occurrence: US)
  Receive Date: 20230501
  Receipt Date: 20230613
  Transmission Date: 20230721
  Serious: No
  Sender: FDA-Public Use
  Company Number: US-009507513-2304USA009398

PATIENT
  Age: 55 Year
  Sex: Male
  Weight: 107.48 kg

DRUGS (5)
  1. KEYTRUDA [Suspect]
     Active Substance: PEMBROLIZUMAB
     Indication: Penile squamous cell carcinoma
     Dosage: 200 MILLIGRAM, Q3W
     Route: 042
     Dates: start: 20230316
  2. CETUXIMAB [Concomitant]
     Active Substance: CETUXIMAB
     Indication: Penile cancer
     Dosage: 120 MILLIGRAM, QOW
     Route: 042
     Dates: start: 20230202
  3. FENOFIBRATE [Concomitant]
     Active Substance: FENOFIBRATE
  4. SIMVASTATIN [Concomitant]
     Active Substance: SIMVASTATIN
  5. XARELTO [Concomitant]
     Active Substance: RIVAROXABAN

REACTIONS (4)
  - Abdominal pain upper [Recovered/Resolved]
  - Pain in extremity [Recovered/Resolved]
  - Abdominal pain upper [Recovered/Resolved]
  - Product use in unapproved indication [Unknown]

NARRATIVE: CASE EVENT DATE: 20230316
